FAERS Safety Report 12648427 (Version 1)
Quarter: 2016Q3

REPORT INFORMATION
  Report Type: Spontaneous
  Country: CH (occurrence: CH)
  Receive Date: 20160812
  Receipt Date: 20160812
  Transmission Date: 20161109
  Serious: Yes (Hospitalization)
  Sender: FDA-Public Use
  Company Number: CH-ASTRAZENECA-2016SE84499

PATIENT
  Age: 54 Year
  Sex: Female

DRUGS (14)
  1. CERTICAN [Suspect]
     Active Substance: EVEROLIMUS
     Route: 065
  2. KCL HAUSMANN [Concomitant]
  3. TAZOBAC [Suspect]
     Active Substance: PIPERACILLIN SODIUM\TAZOBACTAM SODIUM
     Route: 065
  4. TOREM [Suspect]
     Active Substance: TORSEMIDE
     Route: 065
  5. MARCOUMAR [Concomitant]
     Active Substance: PHENPROCOUMON
  6. FLATULEX [Concomitant]
     Active Substance: ACTIVATED CHARCOAL\DIMETHICONE
  7. NORMACOL [Concomitant]
     Active Substance: KARAYA GUM
  8. ALDACTONE [Suspect]
     Active Substance: SPIRONOLACTONE
     Route: 065
  9. PREDNISON STREULI [Concomitant]
  10. FOSAMAX [Concomitant]
     Active Substance: ALENDRONATE SODIUM
  11. CALCIMAGON D3 [Concomitant]
     Active Substance: CALCIUM\CHOLECALCIFEROL
  12. SANDIMMUN NEORAL [Suspect]
     Active Substance: CYCLOSPORINE
     Route: 065
  13. ESOMEP [Suspect]
     Active Substance: ESOMEPRAZOLE
     Route: 048
  14. IMUREK [Suspect]
     Active Substance: AZATHIOPRINE
     Route: 065

REACTIONS (3)
  - Febrile infection [Recovered/Resolved]
  - Cough [Unknown]
  - Pancytopenia [Unknown]

NARRATIVE: CASE EVENT DATE: 201607
